FAERS Safety Report 12237972 (Version 4)
Quarter: 2016Q2

REPORT INFORMATION
  Report Type: Report from Study
  Country: US (occurrence: US)
  Receive Date: 20160405
  Receipt Date: 20160610
  Transmission Date: 20160815
  Serious: Yes (Other)
  Sender: FDA-Public Use
  Company Number: US-GILEAD-2016-0204163

PATIENT
  Age: 74 Year
  Sex: Female

DRUGS (2)
  1. NORVASC [Concomitant]
     Active Substance: AMLODIPINE BESYLATE
  2. AMBRISENTAN [Suspect]
     Active Substance: AMBRISENTAN
     Indication: PRODUCT USED FOR UNKNOWN INDICATION
     Dosage: 5 MG, QD
     Route: 065

REACTIONS (13)
  - Loss of consciousness [Recovered/Resolved]
  - Gastrooesophageal reflux disease [Unknown]
  - Unevaluable event [Unknown]
  - Headache [Unknown]
  - Musculoskeletal discomfort [Recovering/Resolving]
  - Anaemia [Unknown]
  - Irritable bowel syndrome [Not Recovered/Not Resolved]
  - Red blood cell count decreased [Unknown]
  - Oesophageal obstruction [Recovered/Resolved]
  - Pain [Unknown]
  - Migraine [Unknown]
  - Nausea [Unknown]
  - Diverticulitis [Not Recovered/Not Resolved]

NARRATIVE: CASE EVENT DATE: 2015
